FAERS Safety Report 5690637-4 (Version None)
Quarter: 2008Q1

REPORT INFORMATION
  Report Type: 
  Country: None (occurrence: None)
  Receive Date: 20080331
  Receipt Date: 20080331
  Transmission Date: 20080703
  Serious: Yes (Disabling, Other)
  Sender: FDA-Public Use
  Company Number: None

PATIENT
  Age: 7 Year
  Sex: Male
  Weight: 32.2054 kg

DRUGS (2)
  1. SINGULAIR [Suspect]
     Indication: EAR INFECTION
     Dosage: 5MG - CHEWABLE 1X A DAY -I THINK- PO
     Route: 048
     Dates: start: 20080218, end: 20080309
  2. SINGULAIR [Suspect]
     Indication: MULTIPLE ALLERGIES
     Dosage: 5MG - CHEWABLE 1X A DAY -I THINK- PO
     Route: 048
     Dates: start: 20080218, end: 20080309

REACTIONS (11)
  - ABDOMINAL PAIN UPPER [None]
  - ANOREXIA [None]
  - ANXIETY [None]
  - CHOKING [None]
  - CONVERSION DISORDER [None]
  - FEAR [None]
  - FOREIGN BODY TRAUMA [None]
  - PANIC REACTION [None]
  - STOMACH DISCOMFORT [None]
  - THINKING ABNORMAL [None]
  - WEIGHT DECREASED [None]
